FAERS Safety Report 19918419 (Version 12)
Quarter: 2022Q2

REPORT INFORMATION
  Report Type: Report from Study
  Country: CA (occurrence: CA)
  Receive Date: 20211004
  Receipt Date: 20220602
  Transmission Date: 20220721
  Serious: Yes (Death, Other)
  Sender: FDA-Public Use
  Company Number: CA-OTSUKA-2021_033743

PATIENT
  Sex: Male

DRUGS (3)
  1. CEDAZURIDINE\DECITABINE [Suspect]
     Active Substance: CEDAZURIDINE\DECITABINE
     Indication: Myelodysplastic syndrome
     Dosage: 135MG (35 MG DECITABINE AND 100 MG CEDAZURIDINE), QD 1-5 DAYS EVERY 28 DAY CYCLE
     Route: 048
     Dates: start: 20210621
  2. CEDAZURIDINE\DECITABINE [Suspect]
     Active Substance: CEDAZURIDINE\DECITABINE
     Dosage: 135MG (35 MG DECITABINE AND 100 MG CEDAZURIDINE), QD 1-4 DAYS EVERY 28 DAY CYCLE
     Route: 048
  3. CEDAZURIDINE\DECITABINE [Suspect]
     Active Substance: CEDAZURIDINE\DECITABINE
     Dosage: 135MG (35 MG DECITABINE AND 100 MG CEDAZURIDINE), QD 1-3 DAYS EVERY 28 DAY CYCLE
     Route: 048
     Dates: end: 202111

REACTIONS (14)
  - Full blood count abnormal [Unknown]
  - Transfusion [Unknown]
  - Blood product transfusion dependent [Unknown]
  - Platelet count decreased [Unknown]
  - Pneumonia [Fatal]
  - Eastern Cooperative Oncology Group performance status worsened [Unknown]
  - General physical health deterioration [Unknown]
  - Disease progression [Unknown]
  - Muscle spasms [Not Recovered/Not Resolved]
  - Pain [Unknown]
  - Fatigue [Unknown]
  - Nausea [Unknown]
  - Headache [Unknown]
  - Haemoglobin decreased [Unknown]
